FAERS Safety Report 9681739 (Version 3)
Quarter: 2013Q4

REPORT INFORMATION
  Report Type: Spontaneous
  Country: JP (occurrence: JP)
  Receive Date: 20131111
  Receipt Date: 20131204
  Transmission Date: 20140711
  Serious: Yes (Hospitalization)
  Sender: FDA-Public Use
  Company Number: JP-GLAXOSMITHKLINE-B0939897A

PATIENT
  Age: 68 Year
  Sex: Female

DRUGS (5)
  1. PAXIL [Suspect]
     Indication: DEPRESSION
     Dosage: 20MG PER DAY
     Route: 048
     Dates: start: 200710
  2. PAXIL [Suspect]
     Indication: DEPRESSION
     Route: 048
     Dates: end: 201310
  3. PAXIL [Suspect]
     Indication: DEPRESSION
     Dosage: 40MG PER DAY
     Route: 048
     Dates: start: 20131010, end: 20131029
  4. BENZALIN [Concomitant]
     Indication: INSOMNIA
     Dosage: 5MG PER DAY
     Route: 048
  5. DECADRON [Concomitant]
     Dosage: .5MG PER DAY
     Route: 048

REACTIONS (7)
  - Delirium [Recovered/Resolved]
  - Parkinsonism [Recovered/Resolved]
  - Dyskinesia [Recovered/Resolved]
  - Disorientation [Recovered/Resolved]
  - Restlessness [Recovered/Resolved]
  - Depressed mood [Unknown]
  - Hypophagia [Unknown]
